FAERS Safety Report 5870885-0 (Version None)
Quarter: 2008Q3

REPORT INFORMATION
  Report Type: 
  Country: None (occurrence: None)
  Receive Date: 20080904
  Receipt Date: 20080828
  Transmission Date: 20090109
  Serious: Yes (Hospitalization)
  Sender: FDA-Public Use
  Company Number: JP-SANOFI-SYNTHELABO-F01200801390

PATIENT
  Sex: Male

DRUGS (5)
  1. IRINOTECAN HCL [Concomitant]
     Dosage: UNK
     Route: 065
     Dates: start: 20080321, end: 20080321
  2. LEUCOVORIN CALCIUM [Suspect]
     Dosage: UNK
     Route: 041
     Dates: start: 20080322, end: 20080322
  3. FLUOROURACIL [Suspect]
     Dosage: UNK
     Route: 042
     Dates: start: 20080322, end: 20080322
  4. AVASTIN [Suspect]
     Dosage: UNK
     Route: 041
     Dates: start: 20080321, end: 20080321
  5. ELPLAT [Suspect]
     Indication: COLON CANCER RECURRENT
     Dosage: UNK
     Route: 041
     Dates: start: 20080214, end: 20080214

REACTIONS (1)
  - INTERVERTEBRAL DISCITIS [None]
